FAERS Safety Report 19404787 (Version 1)
Quarter: 2021Q2

REPORT INFORMATION
  Report Type: Spontaneous
  Country: US (occurrence: US)
  Receive Date: 20210611
  Receipt Date: 20210611
  Transmission Date: 20210717
  Serious: Yes (Other)
  Sender: FDA-Public Use
  Company Number: None

PATIENT
  Sex: Female

DRUGS (2)
  1. CHEMOTHERAPY [Concomitant]
     Active Substance: UNSPECIFIED INGREDIENT
  2. ROSUVASTATIN. [Suspect]
     Active Substance: ROSUVASTATIN

REACTIONS (2)
  - Asthenia [None]
  - Dysstasia [None]
